FAERS Safety Report 22151577 (Version 1)
Quarter: 2023Q1

REPORT INFORMATION
  Report Type: Spontaneous
  Country: US (occurrence: US)
  Receive Date: 20230329
  Receipt Date: 20230329
  Transmission Date: 20230417
  Serious: No
  Sender: FDA-Public Use
  Company Number: US-TEVA-2023-US-2866630

PATIENT
  Age: 31 Year
  Sex: Male

DRUGS (2)
  1. CLONAZEPAM [Suspect]
     Active Substance: CLONAZEPAM
     Indication: Product used for unknown indication
     Dosage: 2 MG
     Route: 065
  2. CLONAZEPAM [Suspect]
     Active Substance: CLONAZEPAM
     Dosage: 1 MG

REACTIONS (9)
  - Vitreous floaters [Unknown]
  - Withdrawal syndrome [Unknown]
  - Anxiety [Unknown]
  - Dizziness [Unknown]
  - Panic attack [Unknown]
  - Drug ineffective [Unknown]
  - Product size issue [Unknown]
  - Wrong technique in product usage process [Unknown]
  - Therapeutic product effect decreased [Unknown]

NARRATIVE: CASE EVENT DATE: 20230301
